FAERS Safety Report 25503779 (Version 1)
Quarter: 2025Q3

REPORT INFORMATION
  Report Type: Spontaneous
  Country: GB (occurrence: GB)
  Receive Date: 20250702
  Receipt Date: 20250702
  Transmission Date: 20251021
  Serious: Yes (Other)
  Sender: MSN LABORATORIES PRIVATE LIMITED
  Company Number: None

PATIENT

DRUGS (3)
  1. ATORVASTATIN [Suspect]
     Active Substance: ATORVASTATIN
     Indication: Blood cholesterol increased
     Route: 065
     Dates: end: 20250618
  2. Vitamin B 12 (over the counter supplement) [Concomitant]
     Indication: Product used for unknown indication
     Route: 065
  3. Vitamin D (over the counter supplement) [Concomitant]
     Indication: Product used for unknown indication
     Route: 065

REACTIONS (3)
  - Lichen sclerosus [Recovering/Resolving]
  - Dysuria [Recovering/Resolving]
  - Rash [Recovering/Resolving]

NARRATIVE: CASE EVENT DATE: 20250123
